FAERS Safety Report 5083343-0 (Version None)
Quarter: 2006Q3

REPORT INFORMATION
  Report Type: 
  Country: None (occurrence: None)
  Receive Date: 20060818
  Receipt Date: 20060714
  Transmission Date: 20061208
  Serious: Yes (Death)
  Sender: FDA-Public Use
  Company Number: CN-BRACCO-BRO-010339

PATIENT
  Age: 78 Year
  Sex: Female

DRUGS (1)
  1. IOPAMIRO [Suspect]
     Indication: ALLERGY TEST
     Route: 050
     Dates: start: 20060714, end: 20060714

REACTIONS (1)
  - SHOCK [None]
